FAERS Safety Report 4870714-8 (Version None)
Quarter: 2006Q1

REPORT INFORMATION
  Report Type: 
  Country: None (occurrence: None)
  Receive Date: 20060103
  Receipt Date: 20051220
  Transmission Date: 20060701
  Serious: Yes (Hospitalization)
  Sender: FDA-Public Use
  Company Number: ZA-GLAXOSMITHKLINE-B0404973A

PATIENT
  Age: 7 Year
  Sex: Male

DRUGS (3)
  1. LAMIVUDINE [Suspect]
     Indication: HIV INFECTION
     Route: 065
  2. STAVUDINE [Suspect]
     Indication: HIV INFECTION
     Route: 065
  3. EFAVIRENZ [Suspect]
     Indication: HIV INFECTION
     Route: 065

REACTIONS (12)
  - CRYPTOCOCCOSIS [None]
  - ENCEPHALITIS [None]
  - FACIAL PALSY [None]
  - FACIAL PARESIS [None]
  - HEADACHE [None]
  - HERPES SIMPLEX [None]
  - IMMUNE RECONSTITUTION SYNDROME [None]
  - INTRACRANIAL PRESSURE INCREASED [None]
  - NECK PAIN [None]
  - RASH VESICULAR [None]
  - VISUAL DISTURBANCE [None]
  - VOMITING [None]
